FAERS Safety Report 24549520 (Version 1)
Quarter: 2024Q4

REPORT INFORMATION
  Report Type: Spontaneous
  Country: US (occurrence: None)
  Receive Date: 20241024
  Receipt Date: 20241024
  Transmission Date: 20250115
  Serious: Yes (Life-Threatening, Hospitalization)
  Sender: Public
  Company Number: None

PATIENT
  Age: 71 Year
  Sex: Female
  Weight: 60.3 kg

DRUGS (1)
  1. HIZENTRA [Suspect]
     Active Substance: HUMAN IMMUNOGLOBULIN G
     Indication: Immunodeficiency common variable
     Dosage: OTHER FREQUENCY : EVERY WEEK;?
     Route: 058
     Dates: start: 20171020

REACTIONS (3)
  - Atrial fibrillation [None]
  - Thrombosis [None]
  - Cerebrovascular accident [None]

NARRATIVE: CASE EVENT DATE: 20241016
